FAERS Safety Report 9438184 (Version 1)
Quarter: 2013Q3

REPORT INFORMATION
  Report Type: Spontaneous
  Country: US (occurrence: US)
  Receive Date: 20130802
  Receipt Date: 20130802
  Transmission Date: 20140515
  Serious: No
  Sender: FDA-Public Use
  Company Number: US-BRISTOL-MYERS SQUIBB COMPANY-17046889

PATIENT
  Age: 77 Year
  Sex: Female

DRUGS (5)
  1. COUMADIN TABS 2.5 MG [Suspect]
     Indication: THROMBOSIS
     Dates: start: 201002
  2. PANTOPRAZOLE [Concomitant]
  3. OMEGA 3 FISH OIL [Concomitant]
  4. MULTIVITAMIN [Concomitant]
  5. IRON [Concomitant]

REACTIONS (6)
  - International normalised ratio fluctuation [Unknown]
  - Haemorrhage [Unknown]
  - Fatigue [Unknown]
  - Rash [Unknown]
  - Joint swelling [Unknown]
  - Rhinorrhoea [Unknown]
